FAERS Safety Report 17518081 (Version 2)
Quarter: 2020Q3

REPORT INFORMATION
  Report Type: Spontaneous
  Country: GB (occurrence: GB)
  Receive Date: 20200309
  Receipt Date: 20200923
  Transmission Date: 20201102
  Serious: Yes (Other)
  Sender: FDA-Public Use
  Company Number: GB-UCBSA-2020008490

PATIENT
  Age: 72 Year
  Sex: Female
  Weight: 52 kg

DRUGS (5)
  1. KEPPRA [Suspect]
     Active Substance: LEVETIRACETAM
     Indication: EPILEPSY
     Dosage: 500MG AM AND 1G PM
     Route: 048
     Dates: start: 20191120, end: 20200207
  2. DERMOL [BENZALKONIUM CHLORIDE;CHLORHEXIDINE HYDROCHLORIDE;ISOPROPYL MY [Concomitant]
     Indication: PRODUCT USED FOR UNKNOWN INDICATION
     Dosage: SHOWER EMOLLIENT
     Route: 061
  3. PHENYTOIN SODIUM. [Concomitant]
     Active Substance: PHENYTOIN SODIUM
     Indication: EPILEPSY
  4. THEICAL D3 [Concomitant]
     Indication: OSTEOPENIA
  5. LEVETIRACETAM. [Suspect]
     Active Substance: LEVETIRACETAM
     Indication: EPILEPSY

REACTIONS (3)
  - Off label use [Unknown]
  - Seizure [Recovered/Resolved]
  - Product substitution issue [Unknown]
